FAERS Safety Report 21219394 (Version 1)
Quarter: 2022Q3

REPORT INFORMATION
  Report Type: Spontaneous
  Country: US (occurrence: US)
  Receive Date: 20220817
  Receipt Date: 20220817
  Transmission Date: 20221027
  Serious: Yes (Other)
  Sender: FDA-Public Use
  Company Number: US-AMGEN-USASP2022138535

PATIENT
  Age: 70 Year
  Sex: Female

DRUGS (9)
  1. ENBREL [Suspect]
     Active Substance: ETANERCEPT
     Indication: Ankylosing spondylitis
     Dosage: 25 MILLIGRAM, 2 TIMES/WK
     Route: 058
     Dates: start: 20220129
  2. ABILIFY [Concomitant]
     Active Substance: ARIPIPRAZOLE
  3. BACLOFEN [Concomitant]
     Active Substance: BACLOFEN
  4. CELEBREX [Concomitant]
     Active Substance: CELECOXIB
  5. DULOXETINE HYDROCHLORIDE [Concomitant]
     Active Substance: DULOXETINE HYDROCHLORIDE
  6. ESTRADIOL [Concomitant]
     Active Substance: ESTRADIOL
  7. GRISEOFULVIN MICRO [Concomitant]
  8. ROBAXIN [Concomitant]
     Active Substance: METHOCARBAMOL
  9. CHOLECALCIFEROL [Concomitant]
     Active Substance: CHOLECALCIFEROL

REACTIONS (1)
  - Surgery [Unknown]

NARRATIVE: CASE EVENT DATE: 20220722
